FAERS Safety Report 18928400 (Version 5)
Quarter: 2021Q1

REPORT INFORMATION
  Report Type: Report from Study
  Country: AU (occurrence: AU)
  Receive Date: 20210223
  Receipt Date: 20210329
  Transmission Date: 20210420
  Serious: Yes (Death, Hospitalization)
  Sender: FDA-Public Use
  Company Number: AU-ROCHE-2770822

PATIENT
  Age: 68 Year
  Sex: Male
  Weight: 99.8 kg

DRUGS (23)
  1. BENDAMUSTINE [Suspect]
     Active Substance: BENDAMUSTINE
     Indication: CHRONIC LYMPHOCYTIC LEUKAEMIA
     Dosage: (200 MG) ON 2 CONSECUTIVE DAYS OF CYCLES 1?6?MOST RECENT DOSE 200 MG OF BENDAMUSTINE PRIOR TO AE (AD
     Route: 042
     Dates: start: 20210201
  2. INSULIN ASPART PROTAMINE [Concomitant]
     Indication: HYPERGLYCAEMIA
     Dosage: 18 U
     Route: 058
  3. INSULIN ASPART PROTAMINE [Concomitant]
     Dosage: 24 U
     Route: 058
  4. ROSUVASTATIN. [Concomitant]
     Active Substance: ROSUVASTATIN
     Indication: BLOOD CHOLESTEROL DECREASED
     Route: 048
     Dates: end: 20210222
  5. RITUXIMAB. [Suspect]
     Active Substance: RITUXIMAB
     Route: 042
  6. PARACETAMOL [Concomitant]
     Active Substance: ACETAMINOPHEN
     Route: 048
     Dates: start: 20210201, end: 20210201
  7. LORATADINE. [Concomitant]
     Active Substance: LORATADINE
     Route: 048
     Dates: start: 20210201, end: 20210201
  8. PALONOSETRON HYDROCHLORIDE. [Concomitant]
     Active Substance: PALONOSETRON HYDROCHLORIDE
     Route: 042
     Dates: start: 20210201, end: 20210201
  9. ENOXAPARIN [Concomitant]
     Active Substance: ENOXAPARIN
     Route: 058
     Dates: start: 20210131, end: 20210131
  10. RASBURICASE [Concomitant]
     Active Substance: RASBURICASE
     Indication: NEOPLASM PROPHYLAXIS
     Route: 042
     Dates: start: 20210201, end: 20210201
  11. FRUSEMIDE [Concomitant]
     Active Substance: FUROSEMIDE
     Route: 042
     Dates: start: 20210216, end: 20210222
  12. PERINDOPRIL [Concomitant]
     Active Substance: PERINDOPRIL
     Route: 048
     Dates: end: 20210222
  13. SULFAMETHOXAZOLE/TRIMETHOPRIM [Concomitant]
     Active Substance: SULFAMETHOXAZOLE\TRIMETHOPRIM
     Dosage: SULFAMETHOXAZOLE 800MG/TRIMETHOPRIM 160MG
     Route: 048
     Dates: start: 20210201, end: 20210222
  14. PARACETAMOL [Concomitant]
     Active Substance: ACETAMINOPHEN
     Indication: SEPSIS
     Route: 048
     Dates: start: 20210201, end: 20210220
  15. RITUXIMAB. [Suspect]
     Active Substance: RITUXIMAB
     Indication: CHRONIC LYMPHOCYTIC LEUKAEMIA
     Dosage: (800 MG) ON CYCLE 1, DAY 1 FOLLOWED BY 500 MG/M^2 ON DAY 1 OF CYCLES 2?6.?MOST RECENT DOSE 800 MG OF
     Route: 042
     Dates: start: 20210201
  16. METOPROLOL. [Concomitant]
     Active Substance: METOPROLOL
     Indication: ATRIAL FIBRILLATION
     Route: 048
     Dates: start: 20210217, end: 20210222
  17. VALACICLOVIR [Concomitant]
     Active Substance: VALACYCLOVIR HYDROCHLORIDE
     Route: 048
     Dates: start: 20210201, end: 20210222
  18. HYDROCORTISONE SODIUM SUCCINATE [Concomitant]
     Active Substance: HYDROCORTISONE SODIUM SUCCINATE
     Route: 042
     Dates: start: 20210201, end: 20210201
  19. GRANULOCYTE COLONY?STIMULATING FACTOR INJECTION (G?CSF) (UNK INGREDIEN [Concomitant]
     Indication: NEUTROPHIL COUNT DECREASED
     Route: 058
     Dates: start: 20210217, end: 20210221
  20. METFORMIN HYDROCHLORIDE EXTENDED RELEASE [Concomitant]
     Active Substance: METFORMIN HYDROCHLORIDE
     Indication: HYPERGLYCAEMIA
     Route: 048
  21. MOMETASONE FUROATE. [Concomitant]
     Active Substance: MOMETASONE FUROATE
     Indication: INFLAMMATION
     Dosage: 1 OTHER
     Route: 061
     Dates: start: 20200702
  22. AMIODARONE [Concomitant]
     Active Substance: AMIODARONE
     Indication: ATRIAL FIBRILLATION
     Route: 048
     Dates: start: 20210215, end: 20210222
  23. FILGRASTIM [Concomitant]
     Active Substance: FILGRASTIM
     Indication: NEUTROPHIL COUNT DECREASED
     Route: 058
     Dates: start: 20210217, end: 20210221

REACTIONS (3)
  - Drug-induced liver injury [Fatal]
  - Drug-induced liver injury [Not Recovered/Not Resolved]
  - Sepsis [Fatal]

NARRATIVE: CASE EVENT DATE: 20210212
